FAERS Safety Report 25065200 (Version 1)
Quarter: 2025Q1

REPORT INFORMATION
  Report Type: Other
  Country: GE (occurrence: GE)
  Receive Date: 20250311
  Receipt Date: 20250311
  Transmission Date: 20250409
  Serious: Yes (Hospitalization, Other)
  Sender: BRECKENRIDGE PHARMACEUTICAL, INC.
  Company Number: GE-Breckenridge Pharmaceutical, Inc.-2172700

PATIENT
  Age: 58 Year
  Sex: Male

DRUGS (1)
  1. OMEPRAZOLE [Suspect]
     Active Substance: OMEPRAZOLE
     Indication: Barrett^s oesophagus

REACTIONS (5)
  - Urticaria [Unknown]
  - Loss of consciousness [Unknown]
  - Respiratory distress [Unknown]
  - Hypotension [Unknown]
  - Angioedema [Unknown]
